FAERS Safety Report 11191313 (Version 1)
Quarter: 2015Q2

REPORT INFORMATION
  Report Type: Spontaneous
  Country: US (occurrence: US)
  Receive Date: 20150616
  Receipt Date: 20150616
  Transmission Date: 20150821
  Serious: No
  Sender: FDA-Public Use
  Company Number: US-BRISTOL-MYERS SQUIBB COMPANY-BMS-2015-037636

PATIENT
  Sex: Male

DRUGS (1)
  1. ABILIFY [Suspect]
     Active Substance: ARIPIPRAZOLE
     Indication: RESTLESS LEGS SYNDROME
     Dosage: UNK, QWK
     Route: 048

REACTIONS (2)
  - Wrong technique in drug usage process [Unknown]
  - Insomnia [Unknown]
